FAERS Safety Report 10960390 (Version 1)
Quarter: 2015Q1

REPORT INFORMATION
  Report Type: Spontaneous
  Country: IN (occurrence: None)
  Receive Date: 20150325
  Receipt Date: 20150325
  Transmission Date: 20150721
  Serious: Yes (Other)
  Sender: FDA-Public Use
  Company Number: IN-DEXPHARM-20150164

PATIENT
  Age: 62 Year
  Sex: Male

DRUGS (1)
  1. VOVERAN [Suspect]
     Active Substance: DICLOFENAC SODIUM
     Indication: ABDOMINAL PAIN
     Route: 013

REACTIONS (5)
  - Injection site pain [None]
  - Incorrect route of drug administration [None]
  - Finger amputation [None]
  - Dry gangrene [None]
  - Ecchymosis [None]
